FAERS Safety Report 18970164 (Version 1)
Quarter: 2021Q1

REPORT INFORMATION
  Report Type: Report from Study
  Country: US (occurrence: US)
  Receive Date: 20210304
  Receipt Date: 20210304
  Transmission Date: 20210420
  Serious: Yes (Other)
  Sender: FDA-Public Use
  Company Number: US-TAKEDA-US201838170

PATIENT
  Sex: Female

DRUGS (1)
  1. HUMAN NORMAL IMMUNOGLOBULIN; LIQUID [Suspect]
     Active Substance: HUMAN IMMUNOGLOBULIN G
     Indication: IMMUNODEFICIENCY COMMON VARIABLE
     Dosage: 25 G, 1X A MONTH
     Route: 042
     Dates: start: 2015, end: 202101

REACTIONS (5)
  - Skin laceration [Unknown]
  - Nephrolithiasis [Unknown]
  - Osteoporosis [Unknown]
  - Infection [Unknown]
  - Fracture [Unknown]
